FAERS Safety Report 8001708-1 (Version None)
Quarter: 2011Q4

REPORT INFORMATION
  Report Type: 
  Country: None (occurrence: None)
  Receive Date: 20111222
  Receipt Date: 20111208
  Transmission Date: 20120403
  Serious: Yes (Death)
  Sender: FDA-Public Use
  Company Number: US-JNJFOC-20111204518

PATIENT
  Sex: Female
  Weight: 90.72 kg

DRUGS (2)
  1. REMICADE [Suspect]
     Indication: ANKYLOSING SPONDYLITIS
     Route: 042
     Dates: start: 20090101
  2. REMICADE [Suspect]
     Indication: PSORIASIS
     Route: 042
     Dates: start: 20090101

REACTIONS (8)
  - HEPATIC NEOPLASM MALIGNANT [None]
  - PNEUMONIA [None]
  - METASTATIC LYMPHOMA [None]
  - GALLBLADDER DISORDER [None]
  - CAROTID ARTERY OCCLUSION [None]
  - TRANSIENT ISCHAEMIC ATTACK [None]
  - SMALL CELL LUNG CANCER STAGE UNSPECIFIED [None]
  - CHOLELITHIASIS [None]
